FAERS Safety Report 24547602 (Version 1)
Quarter: 2024Q4

REPORT INFORMATION
  Report Type: Report from Study
  Country: EG (occurrence: EG)
  Receive Date: 20241025
  Receipt Date: 20241025
  Transmission Date: 20250115
  Serious: Yes (Hospitalization)
  Sender: TAKEDA
  Company Number: EG-JNJFOC-20241056518

PATIENT
  Age: 43 Year
  Sex: Female
  Weight: 102 kg

DRUGS (4)
  1. BORTEZOMIB [Suspect]
     Active Substance: BORTEZOMIB
     Indication: Plasma cell myeloma
     Dosage: 1 DOSAGE FORM, 2/WEEK
     Route: 058
     Dates: start: 20240210, end: 20240731
  2. Lovir [Concomitant]
     Dosage: 400 MILLIGRAM, BID
     Route: 048
     Dates: start: 202402
  3. LEVOFLOXACIN [Concomitant]
     Active Substance: LEVOFLOXACIN
     Dosage: 500 MILLIGRAM, QD
     Route: 048
     Dates: start: 202402
  4. LENALIDOMIDE [Concomitant]
     Active Substance: LENALIDOMIDE
     Dosage: 5 MILLIGRAM, QD
     Route: 048
     Dates: start: 202402

REACTIONS (4)
  - Bone marrow transplant [Unknown]
  - Muscular weakness [Unknown]
  - Bone pain [Unknown]
  - Limb discomfort [Unknown]

NARRATIVE: CASE EVENT DATE: 20240808
